FAERS Safety Report 21543649 (Version 2)
Quarter: 2022Q4

REPORT INFORMATION
  Report Type: Spontaneous
  Country: US (occurrence: US)
  Receive Date: 20221102
  Receipt Date: 20221116
  Transmission Date: 20230112
  Serious: No
  Sender: FDA-Public Use
  Company Number: US-Calliditas-2022CAL00432

PATIENT
  Age: 33 Year
  Sex: Male

DRUGS (4)
  1. TARPEYO [Suspect]
     Active Substance: BUDESONIDE
     Indication: Haematuria
     Dosage: 16MG (4MG CAPSULES) DAILY
     Route: 048
     Dates: start: 20220926, end: 20221003
  2. VITAMIN C [Concomitant]
     Active Substance: ASCORBIC ACID
  3. FISH OIL [Concomitant]
     Active Substance: FISH OIL
  4. LOSARTAN [Concomitant]
     Active Substance: LOSARTAN

REACTIONS (6)
  - Fatigue [Recovered/Resolved]
  - Somnolence [Recovered/Resolved]
  - Sleep disorder [Recovered/Resolved]
  - Acne [Recovering/Resolving]
  - Intentional underdose [Recovered/Resolved]
  - Feeling abnormal [Recovered/Resolved]

NARRATIVE: CASE EVENT DATE: 20220926
